FAERS Safety Report 8880133 (Version 1)
Quarter: 2012Q4

REPORT INFORMATION
  Report Type: 
  Country: US (occurrence: US)
  Receive Date: 20121031
  Receipt Date: 20121031
  Transmission Date: 20130627
  Serious: Yes (Death, Life-Threatening)
  Sender: FDA-Public Use
  Company Number: US-ROCHE-1136598

PATIENT
  Age: 77 Year
  Sex: Male

DRUGS (1)
  1. ACTIVASE [Suspect]
     Indication: ISCHAEMIC STROKE
     Dosage: Once, 6.75 mg bolus and 60.75 mg infusion
     Route: 042

REACTIONS (4)
  - Cerebellar haemorrhage [Fatal]
  - Respiratory failure [Fatal]
  - Pneumonia aspiration [Unknown]
  - Acute myocardial infarction [Unknown]
